FAERS Safety Report 17206796 (Version 1)
Quarter: 2019Q4

REPORT INFORMATION
  Report Type: Spontaneous
  Country: US (occurrence: US)
  Receive Date: 20191227
  Receipt Date: 20191227
  Transmission Date: 20200122
  Serious: No
  Sender: FDA-Public Use
  Company Number: US-AUROBINDO-AUR-APL-2019-073327

PATIENT

DRUGS (1)
  1. AMOXICILLIN 875 MG [Suspect]
     Active Substance: AMOXICILLIN
     Indication: PRURITUS
     Dosage: UNK
     Route: 065

REACTIONS (1)
  - Pruritus [Unknown]
